FAERS Safety Report 10111296 (Version 1)
Quarter: 2014Q2

REPORT INFORMATION
  Report Type: Spontaneous
  Country: US (occurrence: None)
  Receive Date: 20140421
  Receipt Date: 20140421
  Transmission Date: 20141212
  Serious: Yes (Other)
  Sender: FDA-Public Use
  Company Number: AEGR000249

PATIENT
  Age: 69 Year
  Sex: Female
  Weight: 76.6 kg

DRUGS (6)
  1. JUXTAPID (LOMITAPIDE) CAPSULE, 5MG [Suspect]
     Indication: TYPE IIA HYPERLIPIDAEMIA
     Route: 048
     Dates: start: 201309, end: 201312
  2. SYNTHROID (LEVOTHYROXINE SODIUM) [Concomitant]
  3. ASA (ACETYLSALICYLIC ACID) [Concomitant]
  4. IMDUR (ISOSORBIDE MONONITRATE) [Concomitant]
  5. AMLODIPINE (AMLODIPINE BESILATE) [Concomitant]
  6. RANEXA (RANOLAZINE) [Concomitant]

REACTIONS (2)
  - Abdominal pain upper [None]
  - Confusional state [None]
